FAERS Safety Report 8507672-0 (Version None)
Quarter: 2012Q3

REPORT INFORMATION
  Report Type: 
  Country: None (occurrence: None)
  Receive Date: 20120713
  Receipt Date: 20120705
  Transmission Date: 20120928
  Serious: No
  Sender: FDA-Public Use
  Company Number: US-009507513-1207USA001247

PATIENT

DRUGS (1)
  1. VICTRELIS [Suspect]
     Dosage: UNK
     Route: 048

REACTIONS (3)
  - ABDOMINAL DISTENSION [None]
  - DRY MOUTH [None]
  - DYSGEUSIA [None]
